FAERS Safety Report 9448892 (Version 3)
Quarter: 2013Q3

REPORT INFORMATION
  Report Type: Report from Study
  Country: MX (occurrence: MX)
  Receive Date: 20130808
  Receipt Date: 20130817
  Transmission Date: 20140515
  Serious: Yes (Hospitalization)
  Sender: FDA-Public Use
  Company Number: MX-ROCHE-1071021

PATIENT
  Age: 38 Year
  Sex: Female
  Weight: 57 kg

DRUGS (22)
  1. TOCILIZUMAB [Suspect]
     Indication: RHEUMATOID ARTHRITIS
     Dosage: DOSE OF MOST RECENT OPEN LABLEL SC 162 MG ON 14/MAY/2012
     Route: 058
     Dates: start: 20110829
  2. BLINDED TOCILIZUMAB [Suspect]
     Indication: RHEUMATOID ARTHRITIS
     Dosage: DOSE OF LAST BLINDED SC ON 15/AUG/2011
     Route: 058
     Dates: start: 20110308
  3. BLINDED TOCILIZUMAB [Suspect]
     Indication: RHEUMATOID ARTHRITIS
  4. BLINDED TOCILIZUMAB [Suspect]
     Indication: RHEUMATOID ARTHRITIS
     Dosage: DOSE OF MOST RECENT BLINDED IV ON 25/JUL/2011
     Route: 042
     Dates: start: 20110308
  5. BLINDED TOCILIZUMAB [Suspect]
     Indication: RHEUMATOID ARTHRITIS
  6. CHLOROQUINE [Concomitant]
     Indication: RHEUMATOID ARTHRITIS
     Route: 048
     Dates: start: 200309, end: 200410
  7. LEFLUNOMIDE [Concomitant]
     Indication: RHEUMATOID ARTHRITIS
     Route: 048
     Dates: start: 20090710
  8. METHOTREXATE [Concomitant]
     Indication: RHEUMATOID ARTHRITIS
     Route: 048
     Dates: start: 200309, end: 200409
  9. OMEPRAZOL [Concomitant]
     Route: 048
     Dates: start: 20080903
  10. IBUPROFEN [Concomitant]
     Indication: RHEUMATOID ARTHRITIS
     Route: 048
     Dates: start: 20110926
  11. TRIMETHOPRIM [Concomitant]
     Route: 048
     Dates: start: 20120430, end: 20120507
  12. SULFAMETHOXAZOLE [Concomitant]
     Route: 048
     Dates: start: 20120430, end: 20120507
  13. CEFTRIAXONE [Concomitant]
     Route: 042
     Dates: start: 20120518, end: 20120623
  14. METRONIDAZOLE [Concomitant]
     Route: 042
     Dates: start: 20120518, end: 20120523
  15. METRONIDAZOLE [Concomitant]
     Route: 048
     Dates: start: 20120524, end: 20120608
  16. KETOROLAC [Concomitant]
     Route: 042
     Dates: start: 20120518, end: 20120523
  17. METAMIZOLE [Concomitant]
     Route: 042
     Dates: start: 20120518, end: 20120523
  18. NALBUPHINE [Concomitant]
     Route: 030
     Dates: start: 20120518, end: 20120518
  19. BUTYLSCOPOLAMINE [Concomitant]
     Route: 048
     Dates: start: 20120403, end: 20120409
  20. RANITIDINE [Concomitant]
     Route: 048
     Dates: start: 20120403, end: 20120409
  21. PARACETAMOL [Concomitant]
     Route: 048
     Dates: start: 20120403, end: 20120409
  22. CIPROFLOXACIN [Concomitant]
     Route: 048
     Dates: start: 20120403, end: 20120409

REACTIONS (2)
  - Adrenal gland injury [Recovered/Resolved]
  - Renal abscess [Recovered/Resolved]
